FAERS Safety Report 14032475 (Version 1)
Quarter: 2017Q4

REPORT INFORMATION
  Report Type: Spontaneous
  Country: SA (occurrence: SA)
  Receive Date: 20171002
  Receipt Date: 20171002
  Transmission Date: 20180321
  Serious: Yes (Other)
  Sender: FDA-Public Use
  Company Number: SA-PFIZER INC-2017420378

PATIENT
  Age: 80 Year
  Sex: Male

DRUGS (1)
  1. ECALTA [Suspect]
     Active Substance: ANIDULAFUNGIN
     Dosage: UNK

REACTIONS (1)
  - Ventricular tachycardia [Unknown]
